FAERS Safety Report 4448217-4 (Version None)
Quarter: 2004Q3

REPORT INFORMATION
  Report Type: 
  Country: None (occurrence: None)
  Receive Date: 20040813
  Receipt Date: 20040701
  Transmission Date: 20050211
  Serious: Yes (Hospitalization)
  Sender: FDA-Public Use
  Company Number: SO4-USA-03863-01

PATIENT
  Age: 80 Year
  Sex: Female

DRUGS (3)
  1. NAMENDA [Suspect]
     Indication: DEMENTIA
     Dates: start: 20040401, end: 20040501
  2. ARICEPT [Concomitant]
  3. OTHER MEDICATIONS [Concomitant]

REACTIONS (3)
  - CONFUSIONAL STATE [None]
  - FALL [None]
  - HIP FRACTURE [None]
